FAERS Safety Report 8119874-6 (Version None)
Quarter: 2012Q1

REPORT INFORMATION
  Report Type: 
  Country: None (occurrence: None)
  Receive Date: 20120203
  Receipt Date: 20120121
  Transmission Date: 20120608
  Serious: Yes (Hospitalization)
  Sender: FDA-Public Use
  Company Number: 2012AP000199

PATIENT
  Age: 48 Year
  Sex: Male

DRUGS (3)
  1. METFORMIN HCL [Suspect]
     Indication: DIABETES MELLITUS
     Dosage: 500 MG;BID
  2. SIMVASTATIN [Suspect]
     Indication: PRODUCT USED FOR UNKNOWN INDICATION
     Dosage: 80 MG;QD
  3. PIOGLITAZONE [Concomitant]

REACTIONS (9)
  - HEPATIC STEATOSIS [None]
  - MALAISE [None]
  - FATIGUE [None]
  - DRUG INTERACTION [None]
  - IDIOSYNCRATIC DRUG REACTION [None]
  - ABDOMINAL PAIN UPPER [None]
  - HEPATOTOXICITY [None]
  - WHITE BLOOD CELL COUNT DECREASED [None]
  - PLATELET COUNT DECREASED [None]
